FAERS Safety Report 6908749-3 (Version None)
Quarter: 2010Q3

REPORT INFORMATION
  Report Type: 
  Country: None (occurrence: None)
  Receive Date: 20100805
  Receipt Date: 20100729
  Transmission Date: 20110219
  Serious: Yes (Other)
  Sender: FDA-Public Use
  Company Number: A0850012A

PATIENT
  Age: 54 Year
  Sex: Female
  Weight: 97.3 kg

DRUGS (6)
  1. TYKERB [Suspect]
     Dosage: 1250MG PER DAY
     Route: 048
     Dates: start: 20100129
  2. XELODA [Suspect]
     Route: 065
  3. HERCEPTIN [Concomitant]
  4. DIOVAN [Concomitant]
  5. FEMARA [Concomitant]
  6. PROZAC [Concomitant]

REACTIONS (14)
  - ABDOMINAL PAIN [None]
  - BLISTER [None]
  - DIARRHOEA [None]
  - ERYTHEMA [None]
  - GLOSSODYNIA [None]
  - LIP ULCERATION [None]
  - MOUTH ULCERATION [None]
  - PAIN IN EXTREMITY [None]
  - PALMAR-PLANTAR ERYTHRODYSAESTHESIA SYNDROME [None]
  - PHARYNGEAL ERYTHEMA [None]
  - SKIN CHAPPED [None]
  - SKIN EXFOLIATION [None]
  - STOMATITIS [None]
  - SWOLLEN TONGUE [None]
